FAERS Safety Report 21931831 (Version 1)
Quarter: 2023Q1

REPORT INFORMATION
  Report Type: Spontaneous
  Country: FR (occurrence: FR)
  Receive Date: 20230131
  Receipt Date: 20230131
  Transmission Date: 20230417
  Serious: Yes (Hospitalization)
  Sender: FDA-Public Use
  Company Number: None

PATIENT
  Age: 76 Year
  Sex: Female
  Weight: 116 kg

DRUGS (9)
  1. CARBOPLATIN [Suspect]
     Active Substance: CARBOPLATIN
     Indication: Breast cancer
     Dosage: STRENGTH: 10 MG/ML
     Dates: start: 20221115, end: 20221205
  2. GEMCITABINE [Suspect]
     Active Substance: GEMCITABINE
     Indication: Breast cancer
     Dosage: STRENGTH: 40 MG/ML
     Dates: start: 20221115, end: 20221205
  3. PEMBROLIZUMAB [Suspect]
     Active Substance: PEMBROLIZUMAB
     Indication: Breast cancer
     Dosage: STRENGTH: 25 MG/ML
     Dates: start: 20221115, end: 20221205
  4. LERCANIDIPINE [Concomitant]
     Active Substance: LERCANIDIPINE
  5. ATORVASTATIN [Concomitant]
     Active Substance: ATORVASTATIN
  6. ACEBUTOLOL [Concomitant]
     Active Substance: ACEBUTOLOL
  7. ESIDREX [Concomitant]
     Active Substance: HYDROCHLOROTHIAZIDE
     Dosage: STRENGTH: 25 MG
  8. CANDESARTAN [Concomitant]
     Active Substance: CANDESARTAN
  9. KARDEGIC [Concomitant]
     Active Substance: ASPIRIN DL-LYSINE
     Dosage: 75 MG, POWDER FOR ORAL SOLUTION IN SACHET-DOSE

REACTIONS (3)
  - Hepatic cytolysis [Recovered/Resolved]
  - Myocarditis [Recovering/Resolving]
  - Myositis [Recovering/Resolving]

NARRATIVE: CASE EVENT DATE: 20221205
